FAERS Safety Report 5371860-5 (Version None)
Quarter: 2007Q2

REPORT INFORMATION
  Report Type: 
  Country: None (occurrence: None)
  Receive Date: 20070627
  Receipt Date: 20070619
  Transmission Date: 20071010
  Serious: Yes (Other)
  Sender: FDA-Public Use
  Company Number: US-JNJFOC-20070605122

PATIENT
  Sex: Female

DRUGS (2)
  1. FENTANYL TRANSDERMAL SYSTEM [Suspect]
     Indication: LYMPHOEDEMA
     Route: 062
  2. ACTIQ [Suspect]
     Indication: LYMPHOEDEMA
     Route: 048

REACTIONS (1)
  - INTESTINAL OBSTRUCTION [None]
